FAERS Safety Report 9678314 (Version 3)
Quarter: 2013Q4

REPORT INFORMATION
  Report Type: Spontaneous
  Country: US (occurrence: US)
  Receive Date: 20131108
  Receipt Date: 20131126
  Transmission Date: 20140711
  Serious: Yes (Hospitalization)
  Sender: FDA-Public Use
  Company Number: US-PFIZER INC-2013316994

PATIENT
  Age: 31 Year
  Sex: Female

DRUGS (9)
  1. OLANZAPINE [Suspect]
     Dosage: AS REQUIRED
     Route: 048
  2. ONDANSETRON [Suspect]
     Indication: NAUSEA
     Dosage: AS NEEDED
  3. HALOPERIDOL [Suspect]
     Indication: AGITATION
     Dosage: 5 MG, AVERAGE DAILY DOSE
     Route: 042
  4. HALOPERIDOL [Suspect]
     Dosage: AS REQUIRED (AVERAGE DAILY DOSE OF 4 MG)
     Route: 042
  5. METHADONE [Suspect]
     Indication: DRUG WITHDRAWAL SYNDROME
     Dosage: 30 MG, UNK (THREE DOSES OF 10 MG OVER 12 HOURS)
     Route: 042
  6. METHADONE [Suspect]
     Indication: DRUG WITHDRAWAL SYNDROME
     Dosage: 5 MG, EVERY 6 HOURS
     Route: 048
  7. METHADONE [Suspect]
     Indication: BACK PAIN
  8. METHADONE [Suspect]
     Indication: ABDOMINAL PAIN
  9. HYDROMORPHONE [Suspect]
     Dosage: AS NEEDED

REACTIONS (5)
  - Torsade de pointes [Not Recovered/Not Resolved]
  - Unresponsive to stimuli [Unknown]
  - Ventricular tachycardia [Not Recovered/Not Resolved]
  - Electrocardiogram QT prolonged [Recovered/Resolved]
  - Ventricular extrasystoles [Unknown]
